FAERS Safety Report 21329914 (Version 1)
Quarter: 2022Q3

REPORT INFORMATION
  Report Type: Spontaneous
  Country: US (occurrence: US)
  Receive Date: 20220913
  Receipt Date: 20220913
  Transmission Date: 20221026
  Serious: No
  Sender: FDA-Public Use
  Company Number: US-PFIZER INC-202201155844

PATIENT
  Age: 76 Year
  Sex: Male

DRUGS (6)
  1. PAXLOVID [Suspect]
     Active Substance: NIRMATRELVIR\RITONAVIR
     Indication: COVID-19 treatment
     Dosage: UNK
     Dates: start: 20220905, end: 20220909
  2. LOSARTAN [Concomitant]
     Active Substance: LOSARTAN
     Dosage: UNK
     Dates: start: 202204
  3. LOSARTAN [Concomitant]
     Active Substance: LOSARTAN
     Dates: start: 202205
  4. LOSARTAN [Concomitant]
     Active Substance: LOSARTAN
     Dates: start: 202101
  5. GEMTESA [Concomitant]
     Active Substance: VIBEGRON
     Dosage: UNK
     Dates: start: 202205
  6. PANTOPRAZOLE [Concomitant]
     Active Substance: PANTOPRAZOLE
     Dosage: UNK
     Dates: start: 202101

REACTIONS (1)
  - Symptom recurrence [Not Recovered/Not Resolved]

NARRATIVE: CASE EVENT DATE: 20220911
